FAERS Safety Report 5563638-4 (Version None)
Quarter: 2007Q4

REPORT INFORMATION
  Report Type: 
  Country: None (occurrence: None)
  Receive Date: 20071217
  Receipt Date: 20071207
  Transmission Date: 20080405
  Serious: Yes (Other)
  Sender: FDA-Public Use
  Company Number: US-JNJFOC-20061006152

PATIENT
  Sex: Male
  Weight: 98.2 kg

DRUGS (1)
  1. RISPERDAL [Suspect]
     Indication: PERSONALITY DISORDER

REACTIONS (1)
  - TYPE 2 DIABETES MELLITUS [None]
